FAERS Safety Report 5070498-7 (Version None)
Quarter: 2006Q3

REPORT INFORMATION
  Report Type: 
  Country: None (occurrence: None)
  Receive Date: 20060804
  Receipt Date: 20060725
  Transmission Date: 20061208
  Serious: Yes (Other)
  Sender: FDA-Public Use
  Company Number: GB-JNJFOC-20060800848

PATIENT
  Sex: Female

DRUGS (8)
  1. REMICADE [Suspect]
     Indication: RHEUMATOID ARTHRITIS
     Route: 042
  2. METHOTREXATE [Concomitant]
     Route: 065
  3. VOLTAREN [Concomitant]
     Route: 065
  4. PREDNISOLONE [Concomitant]
     Route: 065
  5. HRT [Concomitant]
     Route: 065
  6. FISH OIL [Concomitant]
     Indication: NUTRITIONAL SUPPORT
     Route: 065
  7. SELENIUM SULFIDE [Concomitant]
     Indication: NUTRITIONAL SUPPORT
     Route: 065
  8. FOSAMAX [Concomitant]
     Route: 065

REACTIONS (2)
  - RHEUMATOID ARTHRITIS [None]
  - THYMOMA MALIGNANT [None]
